FAERS Safety Report 15480950 (Version 1)
Quarter: 2018Q4

REPORT INFORMATION
  Report Type: Spontaneous
  Country: US (occurrence: US)
  Receive Date: 20181010
  Receipt Date: 20181010
  Transmission Date: 20190205
  Serious: Yes (Other)
  Sender: FDA-Public Use
  Company Number: US-ALEXION-A201813198

PATIENT
  Sex: Female

DRUGS (1)
  1. STRENSIQ [Suspect]
     Active Substance: ASFOTASE ALFA
     Indication: HYPOPHOSPHATASIA
     Dosage: UNK
     Route: 065

REACTIONS (8)
  - Oral herpes [Unknown]
  - Lip swelling [Unknown]
  - Hypersensitivity [Unknown]
  - Pneumonia [Unknown]
  - Chapped lips [Unknown]
  - Sinusitis [Unknown]
  - Lip pain [Unknown]
  - Depressed mood [Unknown]
